FAERS Safety Report 4886926-3 (Version None)
Quarter: 2006Q1

REPORT INFORMATION
  Report Type: 
  Country: None (occurrence: None)
  Receive Date: 20060118
  Receipt Date: 20060104
  Transmission Date: 20060701
  Serious: Yes (Hospitalization, Other)
  Sender: FDA-Public Use
  Company Number: USA0507101871

PATIENT
  Age: 60 Year
  Sex: Female
  Weight: 84.8 kg

DRUGS (12)
  1. FORTEO [Suspect]
     Dosage: 20 UG
     Dates: start: 20040823
  2. FORTEO PEN (FORTEO PEN) PEN DISPOSABLE [Concomitant]
  3. ACTOS [Concomitant]
  4. CLOPIDOGREL BISULFATE [Concomitant]
  5. FUROSEMIDE [Concomitant]
  6. OSCAL (CALCIUM CARBONATE) [Concomitant]
  7. PREDNISONE [Concomitant]
  8. PROTONIX [Concomitant]
  9. TOPROL-XL [Concomitant]
  10. BACTRIM [Concomitant]
  11. LANTUS [Concomitant]
  12. GABAPENTIN [Concomitant]

REACTIONS (1)
  - PUBIC RAMI FRACTURE [None]
